FAERS Safety Report 8115772-2 (Version None)
Quarter: 2012Q1

REPORT INFORMATION
  Report Type: 
  Country: None (occurrence: None)
  Receive Date: 20120123
  Receipt Date: 20120111
  Transmission Date: 20120608
  Serious: Yes (Hospitalization, Other)
  Sender: FDA-Public Use
  Company Number: AEUSA201100317

PATIENT
  Age: 35 Year
  Sex: Female

DRUGS (9)
  1. TYLENOL (CAPLET) [Concomitant]
  2. MYCOPHENOLATE MOFETIL (CELLCEPT) [Concomitant]
  3. NAPROSYN [Concomitant]
  4. PREDNISONE TAB [Concomitant]
  5. GAMUNEX [Suspect]
     Indication: MYASTHENIA GRAVIS
     Dosage: IV
     Route: 042
     Dates: start: 20110901
  6. CYCLOBENZAPRINE [Concomitant]
  7. BENADRYL [Concomitant]
  8. LEXAPRO [Concomitant]
  9. FIORICET [Concomitant]

REACTIONS (3)
  - HAEMOLYSIS [None]
  - ANTIBODY TEST POSITIVE [None]
  - PULMONARY EMBOLISM [None]
